FAERS Safety Report 5980765-8 (Version None)
Quarter: 2008Q4

REPORT INFORMATION
  Report Type: 
  Country: None (occurrence: None)
  Receive Date: 20081205
  Receipt Date: 20080411
  Transmission Date: 20090506
  Serious: No
  Sender: FDA-Public Use
  Company Number: A0722292A

PATIENT
  Age: 64 Year
  Sex: Female

DRUGS (1)
  1. COMMIT [Suspect]
     Dates: start: 20080410, end: 20080410

REACTIONS (2)
  - HEADACHE [None]
  - NAUSEA [None]
